FAERS Safety Report 21677850 (Version 1)
Quarter: 2022Q4

REPORT INFORMATION
  Report Type: Report from Study
  Country: US (occurrence: US)
  Receive Date: 20221203
  Receipt Date: 20221203
  Transmission Date: 20230113
  Serious: Yes (Hospitalization, Other)
  Sender: FDA-Public Use
  Company Number: US-ABBVIE-4222062

PATIENT
  Age: 65 Year
  Sex: Female

DRUGS (1)
  1. HUMIRA [Suspect]
     Active Substance: ADALIMUMAB
     Indication: Ankylosing spondylitis
     Route: 058
     Dates: start: 20211014

REACTIONS (8)
  - Hip arthroplasty [Unknown]
  - Joint range of motion decreased [Unknown]
  - Mobility decreased [Unknown]
  - Loss of personal independence in daily activities [Unknown]
  - Dysstasia [Unknown]
  - Back pain [Unknown]
  - Cough [Unknown]
  - Impaired self-care [Unknown]

NARRATIVE: CASE EVENT DATE: 20220920
